FAERS Safety Report 6579783-0 (Version None)
Quarter: 2010Q1

REPORT INFORMATION
  Report Type: 
  Country: None (occurrence: None)
  Receive Date: 20100212
  Receipt Date: 20100201
  Transmission Date: 20100710
  Serious: Yes (Hospitalization)
  Sender: FDA-Public Use
  Company Number: FR-ROCHE-682995

PATIENT
  Sex: Female
  Weight: 56 kg

DRUGS (7)
  1. PEGASYS [Suspect]
     Indication: HEPATITIS C
     Dosage: FORM: INJECTABLE SOLUTION
     Route: 058
     Dates: start: 20080901, end: 20081230
  2. PEGASYS [Suspect]
     Route: 058
     Dates: start: 20090115, end: 20090115
  3. COPEGUS [Suspect]
     Indication: HEPATITIS C
     Route: 048
     Dates: start: 20080901, end: 20081230
  4. REBETOL [Suspect]
     Indication: HEPATITIS C
     Route: 048
     Dates: start: 20090115, end: 20090122
  5. TERCIAN [Concomitant]
     Dosage: DRINKABLE SOLUTION; STRENGTH: 40 MG/ML; DOSE: 50 DROPS IN AM AND PM AND 25 DROPS IN LUNCHTIME
     Route: 048
  6. LAROXYL [Concomitant]
     Indication: DEPRESSION
     Dosage: DRINKABLE SOLUTION; STRENGTH: 40 MG/ML; DOSE: 10 DROPS IN AM AND 20 DROPS IN PM
     Route: 048
  7. LEPTICUR [Concomitant]
     Route: 048

REACTIONS (1)
  - PERSECUTORY DELUSION [None]
